FAERS Safety Report 13045598 (Version 1)
Quarter: 2016Q4

REPORT INFORMATION
  Report Type: Spontaneous
  Country: US (occurrence: US)
  Receive Date: 20161220
  Receipt Date: 20161220
  Transmission Date: 20170207
  Serious: No
  Sender: FDA-Public Use
  Company Number: None

PATIENT
  Age: 75 Year
  Sex: Male
  Weight: 122.47 kg

DRUGS (9)
  1. ATORVASTATIN [Concomitant]
     Active Substance: ATORVASTATIN
  2. SERTRALINE HCL [Concomitant]
     Active Substance: SERTRALINE HYDROCHLORIDE
  3. ASPIRIN. [Concomitant]
     Active Substance: ASPIRIN
  4. BUMETANIDE. [Concomitant]
     Active Substance: BUMETANIDE
  5. LUPRON DEPOT [Suspect]
     Active Substance: LEUPROLIDE ACETATE
     Indication: HORMONE LEVEL ABNORMAL
     Dosage: QUANITY - INJECTION EVERY 6 MONTHS - FREQUENCY - EVERY 6 MONTHS ROUTE - INJECTION
     Dates: start: 20141111, end: 20151120
  6. DONEPEZIL HCL [Concomitant]
     Active Substance: DONEPEZIL HYDROCHLORIDE
  7. LOSARTAN POTASSIUM. [Concomitant]
     Active Substance: LOSARTAN POTASSIUM
  8. PRAMIPEXOLE. [Concomitant]
     Active Substance: PRAMIPEXOLE
  9. NAMENDA [Concomitant]
     Active Substance: MEMANTINE HYDROCHLORIDE

REACTIONS (4)
  - Confusional state [None]
  - Joint swelling [None]
  - Pain in extremity [None]
  - Peripheral swelling [None]

NARRATIVE: CASE EVENT DATE: 20161120
